FAERS Safety Report 15250964 (Version 2)
Quarter: 2018Q4

REPORT INFORMATION
  Report Type: Report from Study
  Country: GB (occurrence: GB)
  Receive Date: 20180807
  Receipt Date: 20181222
  Transmission Date: 20190204
  Serious: Yes (Other)
  Sender: FDA-Public Use
  Company Number: PHHY2018GB061816

PATIENT
  Age: 46 Year
  Sex: Female

DRUGS (1)
  1. COSENTYX [Suspect]
     Active Substance: SECUKINUMAB
     Indication: PSORIASIS
     Dosage: 300 MG, QMO
     Route: 058
     Dates: start: 20180504

REACTIONS (3)
  - Sinusitis [Unknown]
  - Lower respiratory tract infection [Unknown]
  - Infected cyst [Recovering/Resolving]

NARRATIVE: CASE EVENT DATE: 20180726
